FAERS Safety Report 23635321 (Version 1)
Quarter: 2024Q1

REPORT INFORMATION
  Report Type: Spontaneous
  Country: US (occurrence: US)
  Receive Date: 20240315
  Receipt Date: 20240315
  Transmission Date: 20240409
  Serious: No
  Sender: FDA-Public Use
  Company Number: US-BRISTOL-MYERS-SQUIBB-COMPANY-2024-009523

PATIENT

DRUGS (1)
  1. LENALIDOMIDE [Suspect]
     Active Substance: LENALIDOMIDE
     Indication: Primary amyloidosis
     Dosage: 15 MILLIGRAM, QD 21 DAYS ON, THEN 7 DAYS OFF
     Route: 065

REACTIONS (1)
  - Off label use [Unknown]
